FAERS Safety Report 10401914 (Version 1)
Quarter: 2014Q3

REPORT INFORMATION
  Report Type: Spontaneous
  Country: IT (occurrence: None)
  Receive Date: 20140820
  Receipt Date: 20140820
  Transmission Date: 20150326
  Serious: Yes (Other)
  Sender: FDA-Public Use
  Company Number: 1443962

PATIENT
  Age: 74 Year
  Sex: Female

DRUGS (4)
  1. LITHIUM [Suspect]
     Active Substance: LITHIUM CARBONATE
     Indication: BIPOLAR DISORDER
  2. CLOMIPRAMINE [Concomitant]
     Active Substance: CLOMIPRAMINE
  3. VALSARTAN/HYDROCHLOROTHIAZIDE [Suspect]
     Active Substance: HYDROCHLOROTHIAZIDE\VALSARTAN
     Indication: HYPERTENSION
     Dosage: 160/12.5 MG ONCE DAILY
  4. GLIMEPIRIDE. [Concomitant]
     Active Substance: GLIMEPIRIDE

REACTIONS (6)
  - Hypothyroidism [None]
  - Dehydration [None]
  - Drug interaction [None]
  - Parkinsonism [None]
  - Toxicity to various agents [None]
  - Glomerular filtration rate decreased [None]
